FAERS Safety Report 9355602 (Version 1)
Quarter: 2013Q2

REPORT INFORMATION
  Report Type: Spontaneous
  Country: US (occurrence: None)
  Receive Date: 20130618
  Receipt Date: 20130618
  Transmission Date: 20140414
  Serious: No
  Sender: FDA-Public Use
  Company Number: None

PATIENT
  Age: 65 Year
  Sex: Female
  Weight: 72.58 kg

DRUGS (10)
  1. CLOTRIMAZOLE [Suspect]
     Indication: FUNGAL INFECTION
     Dosage: 2 TIMES DAILY (MORNING + EVENING) RUB ON SKIN IN AFFECTED AREA
     Dates: start: 20120709, end: 20130517
  2. IBPROFEN [Concomitant]
  3. SIMVASTATIN [Concomitant]
  4. L-THYROXINE [Concomitant]
  5. AMITRIPTYLINE [Concomitant]
  6. CINNOMON [Concomitant]
  7. FISH OIL [Concomitant]
  8. CALCIUM [Concomitant]
  9. VIT. D [Concomitant]
  10. SMOOTH MOVE CAPS [Concomitant]

REACTIONS (4)
  - Pruritus [None]
  - Burning sensation [None]
  - Drug ineffective [None]
  - Product quality issue [None]
